FAERS Safety Report 16457927 (Version 1)
Quarter: 2019Q2

REPORT INFORMATION
  Report Type: Report from Study
  Country: GR (occurrence: GR)
  Receive Date: 20190620
  Receipt Date: 20190620
  Transmission Date: 20190711
  Serious: Yes (Hospitalization)
  Sender: FDA-Public Use
  Company Number: GR-PFIZER INC-2019254896

PATIENT
  Age: 68 Year
  Sex: Female
  Weight: 98 kg

DRUGS (8)
  1. LONALGAL [Concomitant]
     Active Substance: ACETAMINOPHEN\CODEINE PHOSPHATE
     Route: 065
  2. TRASTUZUMAB. [Suspect]
     Active Substance: TRASTUZUMAB
     Indication: BREAST CANCER METASTATIC
     Dosage: 8 MG/KG, UNK
     Route: 042
     Dates: start: 20161018
  3. TAXOTERE [Suspect]
     Active Substance: DOCETAXEL
     Indication: BREAST CANCER METASTATIC
     Dosage: 75 MG/KG, EVERY 3 WEEKS
     Route: 042
     Dates: start: 20161018
  4. T4 [Concomitant]
     Active Substance: LEVOTHYROXINE
     Route: 065
     Dates: start: 20090615
  5. ZOMETA [Concomitant]
     Active Substance: ZOLEDRONIC ACID
     Route: 065
     Dates: start: 20161018
  6. PERTUZUMAB. [Suspect]
     Active Substance: PERTUZUMAB
     Indication: BREAST CANCER METASTATIC
     Dosage: 840 MG/KG, EVERY 3 WEEKS
     Route: 042
     Dates: start: 20161018
  7. T4 [Concomitant]
     Active Substance: LEVOTHYROXINE
     Dates: start: 20090615
  8. DUROGESIC [Concomitant]
     Active Substance: FENTANYL
     Dates: start: 20160615

REACTIONS (2)
  - Neutrophil count decreased [Recovered/Resolved]
  - Abdominal pain [Recovered/Resolved]

NARRATIVE: CASE EVENT DATE: 20161031
